FAERS Safety Report 4602044-3 (Version None)
Quarter: 2005Q2

REPORT INFORMATION
  Report Type: 
  Country: None (occurrence: None)
  Receive Date: 20050214
  Receipt Date: 20041008
  Transmission Date: 20051028
  Serious: Yes (Death)
  Sender: FDA-Public Use
  Company Number: 8007678

PATIENT
  Age: 36 Year
  Sex: 0

DRUGS (2)
  1. KEPPRA [Suspect]
  2. ETHANOL [Suspect]

REACTIONS (1)
  - COMPLETED SUICIDE [None]
